FAERS Safety Report 16767123 (Version 1)
Quarter: 2019Q3

REPORT INFORMATION
  Report Type: Spontaneous
  Country: ES (occurrence: ES)
  Receive Date: 20190903
  Receipt Date: 20190903
  Transmission Date: 20191005
  Serious: Yes (Other)
  Sender: FDA-Public Use
  Company Number: ES-MYLANLABS-2019M1081342

PATIENT
  Age: 72 Year
  Sex: Male

DRUGS (13)
  1. ALGIDOL                            /00109201/ [Concomitant]
     Indication: ODYNOPHAGIA
     Dosage: 1/8 3 D?AS
     Route: 048
     Dates: start: 20190116
  2. TRANKIMAZIN [Concomitant]
     Active Substance: ALPRAZOLAM
     Route: 048
  3. ATORVASTATINA CINFA [Concomitant]
     Active Substance: ATORVASTATIN CALCIUM
     Route: 048
  4. PAROXETINE. [Suspect]
     Active Substance: PAROXETINE
     Indication: ANXIETY
     Dosage: 10 MILLIGRAM, QD 1-0-0
     Route: 048
     Dates: start: 20190103, end: 20190129
  5. PAROXETINE. [Suspect]
     Active Substance: PAROXETINE
     Dosage: 20 MILLIGRAM MAP 29/01/2019 ^SUBO PAROXETINA A 20 MGR^.... 1-0-0
     Route: 048
     Dates: start: 20190129, end: 20190312
  6. COLIRCUSI DEXAMETASONA             /00016002/ [Concomitant]
     Indication: CONJUNCTIVITIS ALLERGIC
     Dosage: 2 DOSAGE FORM, Q8H 2/8 5 D?AS
     Route: 047
     Dates: start: 20190116
  7. CANDESARTAN HCT [Concomitant]
     Active Substance: CANDESARTAN CILEXETIL\HYDROCHLOROTHIAZIDE
  8. DUSPATALIN                         /00139402/ [Concomitant]
     Active Substance: MEBEVERINE HYDROCHLORIDE
     Route: 048
     Dates: start: 20190116
  9. TRANGOREX [Concomitant]
     Active Substance: AMIODARONE HYDROCHLORIDE
     Route: 048
  10. DEPRAX                             /00447702/ [Concomitant]
     Active Substance: TRAZODONE HYDROCHLORIDE
     Indication: ANXIETY
     Dosage: 100 MILLIGRAM 0-0-1
     Route: 048
     Dates: start: 20190129
  11. SINTROM [Concomitant]
     Active Substance: ACENOCOUMAROL
     Route: 048
  12. PARACETAMOL [Concomitant]
     Active Substance: ACETAMINOPHEN
     Route: 048
  13. ZANTAC [Concomitant]
     Active Substance: RANITIDINE HYDROCHLORIDE
     Route: 048

REACTIONS (2)
  - Erectile dysfunction [Unknown]
  - Anorgasmia [Unknown]

NARRATIVE: CASE EVENT DATE: 201903
